FAERS Safety Report 20794810 (Version 3)
Quarter: 2022Q2

REPORT INFORMATION
  Report Type: Spontaneous
  Country: US (occurrence: US)
  Receive Date: 20220506
  Receipt Date: 20220613
  Transmission Date: 20220720
  Serious: No
  Sender: FDA-Public Use
  Company Number: US-PFIZER INC-202200556999

PATIENT
  Age: 14 Year
  Sex: Male
  Weight: 52.16 kg

DRUGS (1)
  1. GENOTROPIN [Suspect]
     Active Substance: SOMATROPIN
     Indication: Growth hormone deficiency
     Dosage: 2.2 ML, 1X/DAY (INJECTION)
     Dates: start: 201712

REACTIONS (7)
  - Poor quality device used [Unknown]
  - Underdose [Unknown]
  - Device breakage [Unknown]
  - Device leakage [Unknown]
  - Device issue [Unknown]
  - Device use issue [Unknown]
  - Stress [Unknown]

NARRATIVE: CASE EVENT DATE: 20210101
